FAERS Safety Report 10397986 (Version 3)
Quarter: 2014Q3

REPORT INFORMATION
  Report Type: Spontaneous
  Country: IE (occurrence: IE)
  Receive Date: 20140821
  Receipt Date: 20140923
  Transmission Date: 20150326
  Serious: Yes (Other)
  Sender: FDA-Public Use
  Company Number: IE-UCBSA-2014005117

PATIENT
  Age: 33 Year
  Sex: Female

DRUGS (1)
  1. CIMZIA [Suspect]
     Active Substance: CERTOLIZUMAB PEGOL
     Indication: PSORIATIC ARTHROPATHY
     Dosage: 400 MG, EV 2 WEEKS(QOW) FOR 0,2, 4 WEEKS, AND 200 MG EVERY OTHERWEEK THERAFTER
     Route: 058
     Dates: start: 201407, end: 2014

REACTIONS (8)
  - Urticaria [Unknown]
  - Rash generalised [Unknown]
  - Swelling [Unknown]
  - Throat tightness [Unknown]
  - Local swelling [Unknown]
  - Feeling hot [Unknown]
  - Rhinorrhoea [Unknown]
  - Pruritus [Unknown]

NARRATIVE: CASE EVENT DATE: 201407
